FAERS Safety Report 8819365 (Version 1)
Quarter: 2012Q4

REPORT INFORMATION
  Report Type: Spontaneous
  Country: AR (occurrence: None)
  Receive Date: 20121003
  Receipt Date: 20121003
  Transmission Date: 20130627
  Serious: Yes (Hospitalization, Other)
  Sender: FDA-Public Use
  Company Number: FK201202752

PATIENT
  Age: 74 Year
  Sex: Female

DRUGS (2)
  1. HEPARIN [Suspect]
     Indication: HAEMODIALYSIS
     Dosage: 40 iu/kg, intravenous bolus
     Route: 040
  2. HEPARIN [Suspect]
     Indication: HAEMODIALYSIS
     Dosage: 10 IU/kg, for 4 hours infusion, Intravenous (not otherwise specified)
     Route: 042

REACTIONS (7)
  - Pericardial effusion [None]
  - Heparin-induced thrombocytopenia [None]
  - Tachycardia [None]
  - Cyanosis [None]
  - Device occlusion [None]
  - Thrombosis in device [None]
  - Deep vein thrombosis [None]
